FAERS Safety Report 7931775-2 (Version None)
Quarter: 2011Q4

REPORT INFORMATION
  Report Type: 
  Country: None (occurrence: None)
  Receive Date: 20111121
  Receipt Date: 20111115
  Transmission Date: 20120403
  Serious: Yes (Death)
  Sender: FDA-Public Use
  Company Number: US-CELGENEUS-163-21880-11112723

PATIENT
  Sex: Male
  Weight: 61.744 kg

DRUGS (15)
  1. GABAPENTIN [Concomitant]
     Dosage: 300 MILLIGRAM
     Route: 065
  2. WARFARIN SODIUM [Concomitant]
     Dosage: 2 MILLIGRAM
     Route: 065
  3. OXYCODONE HCL [Concomitant]
     Dosage: 5 MILLIGRAM
     Route: 065
  4. MULTI-VITAMINS [Concomitant]
     Route: 065
  5. TAMSULOSIN HCL [Concomitant]
     Dosage: 4 MILLIGRAM
     Route: 065
  6. OXYCONTIN [Concomitant]
     Dosage: 20 MILLIGRAM
     Route: 065
  7. COENZYME Q10 [Concomitant]
     Dosage: 200 MILLIGRAM
     Route: 065
  8. CHOLECALCIFEROL [Concomitant]
     Dosage: 5000 UNITS
     Route: 065
  9. SYNTHROID [Concomitant]
     Dosage: 25 MICROGRAM
     Route: 065
  10. DEXAMETHASONE [Concomitant]
     Dosage: 5 MILLIGRAM
     Route: 065
  11. MIRALAX [Concomitant]
     Dosage: 17 GRAM
     Route: 065
  12. REVLIMID [Suspect]
     Dosage: 10 MILLIGRAM
     Route: 048
     Dates: start: 20110601, end: 20110801
  13. REVLIMID [Suspect]
     Indication: MULTIPLE MYELOMA
     Dosage: 25 MILLIGRAM
     Route: 048
     Dates: start: 20110101
  14. SYNTHROID [Concomitant]
     Dosage: 50 MICROGRAM
     Route: 065
  15. SPIRONOLACTONE [Concomitant]
     Dosage: 25 MILLIGRAM
     Route: 065

REACTIONS (1)
  - DEATH [None]
